FAERS Safety Report 11824430 (Version 1)
Quarter: 2015Q4

REPORT INFORMATION
  Report Type: Report from Study
  Country: TW (occurrence: TW)
  Receive Date: 20151210
  Receipt Date: 20151210
  Transmission Date: 20160305
  Serious: No
  Sender: FDA-Public Use
  Company Number: PHHY2015TW037583

PATIENT
  Age: 69 Year
  Sex: Male

DRUGS (13)
  1. COLCHICINE. [Concomitant]
     Active Substance: COLCHICINE
     Indication: ARTHRITIS
     Dosage: 0.5 MG, UNK
     Route: 048
     Dates: start: 20130717
  2. ISONIAZIDE [Concomitant]
     Active Substance: ISONIAZID
     Indication: DISSEMINATED TUBERCULOSIS
     Dosage: 100 MG/ TA
     Route: 048
     Dates: start: 20130924
  3. GASTER [Concomitant]
     Active Substance: FAMOTIDINE
     Indication: GASTROOESOPHAGEAL REFLUX DISEASE
     Dosage: 20 MG/ TAB
     Route: 048
     Dates: start: 20130708
  4. PREDNISOLONE. [Concomitant]
     Active Substance: PREDNISOLONE
     Indication: PLEURAL EFFUSION
     Dosage: 5 MG, UNK
     Route: 048
     Dates: start: 20130717
  5. VITAMIN B6 [Concomitant]
     Active Substance: PYRIDOXINE HYDROCHLORIDE
     Indication: DISSEMINATED TUBERCULOSIS
     Dosage: 50 MG, UNK
     Route: 048
     Dates: start: 20130717
  6. TASIGNA [Suspect]
     Active Substance: NILOTINIB
     Indication: CHRONIC MYELOID LEUKAEMIA
     Dosage: 300 MG, UNK
     Route: 048
     Dates: start: 20130924, end: 20131001
  7. ACTEIN [Concomitant]
     Indication: COUGH
     Dosage: 600 MG, UNK
     Route: 048
     Dates: start: 20130717
  8. TAMSULOISIN [Concomitant]
     Indication: PRODUCT USED FOR UNKNOWN INDICATION
     Dosage: 0.4 MG, UNK
     Route: 048
     Dates: start: 20140102
  9. BM COOL [Concomitant]
     Indication: COUGH
     Dosage: 200 ML, UNK
     Route: 048
     Dates: start: 20130924
  10. FINASTERIDE. [Concomitant]
     Active Substance: FINASTERIDE
     Indication: PRODUCT USED FOR UNKNOWN INDICATION
     Dosage: 5 MG, UNK
     Route: 048
     Dates: start: 20140124
  11. RIFATER [Concomitant]
     Active Substance: ISONIAZID\PYRAZINAMIDE\RIFAMPIN
     Indication: DISSEMINATED TUBERCULOSIS
     Dosage: 120MG/80MG
     Route: 048
     Dates: start: 20130717
  12. EBUTOL [Concomitant]
     Active Substance: ETHAMBUTOL HYDROCHLORIDE
     Indication: DISSEMINATED TUBERCULOSIS
     Dosage: 400 MG, UNK
     Route: 048
     Dates: start: 20130717
  13. BENZBROMARONE [Concomitant]
     Active Substance: BENZBROMARONE
     Indication: ARTHRITIS
     Dosage: 100 MG, UNK
     Route: 048
     Dates: start: 20130717

REACTIONS (1)
  - Prostatic obstruction [Not Recovered/Not Resolved]

NARRATIVE: CASE EVENT DATE: 20131104
